FAERS Safety Report 26053130 (Version 1)
Quarter: 2025Q4

REPORT INFORMATION
  Report Type: Spontaneous
  Country: US (occurrence: None)
  Receive Date: 20251114
  Receipt Date: 20251114
  Transmission Date: 20260118
  Serious: Yes (Hospitalization)
  Sender: FDA-CTU
  Company Number: None

PATIENT
  Age: 63 Year

DRUGS (1)
  1. STELARA [Suspect]
     Active Substance: USTEKINUMAB
     Indication: Crohn^s disease
     Dosage: OTHER FREQUENCY : OTHER;?
     Route: 058
     Dates: start: 20230105

REACTIONS (2)
  - Memory impairment [None]
  - Gastrointestinal disorder [None]

NARRATIVE: CASE EVENT DATE: 20250715
